FAERS Safety Report 4374713-4 (Version None)
Quarter: 2004Q2

REPORT INFORMATION
  Report Type: 
  Country: None (occurrence: None)
  Receive Date: 20040604
  Receipt Date: 20040525
  Transmission Date: 20050107
  Serious: Yes (Other)
  Sender: FDA-Public Use
  Company Number: 2004035062

PATIENT
  Age: 34 Year
  Sex: Female

DRUGS (2)
  1. UNASYN [Suspect]
     Indication: PROPHYLAXIS
     Dosage: 1500 MG (1500 MG, 1 IN 1 D), INTRAVENOUS
     Route: 042
     Dates: start: 20040501, end: 20040501
  2. THIOPENTAL SODIUM [Concomitant]

REACTIONS (3)
  - BRONCHOSPASM [None]
  - CHILLS [None]
  - CYANOSIS [None]
